FAERS Safety Report 20995173 (Version 2)
Quarter: 2022Q3

REPORT INFORMATION
  Report Type: Spontaneous
  Country: US (occurrence: US)
  Receive Date: 20220622
  Receipt Date: 20220923
  Transmission Date: 20221027
  Serious: Yes (Other)
  Sender: FDA-Public Use
  Company Number: US-SA-SAC20220620001862

PATIENT
  Age: 63 Year
  Sex: Female

DRUGS (1)
  1. DUPIXENT [Suspect]
     Active Substance: DUPILUMAB
     Indication: Eczema
     Dosage: 300 MG, OTHER
     Route: 058
     Dates: start: 202203

REACTIONS (6)
  - Endometrial cancer [Unknown]
  - Ocular hyperaemia [Unknown]
  - Dry eye [Unknown]
  - Diarrhoea [Unknown]
  - Rash [Unknown]
  - Inappropriate schedule of product administration [Unknown]

NARRATIVE: CASE EVENT DATE: 20220101
